FAERS Safety Report 7516640-7 (Version None)
Quarter: 2011Q2

REPORT INFORMATION
  Report Type: 
  Country: None (occurrence: None)
  Receive Date: 20110601
  Receipt Date: 20110526
  Transmission Date: 20111010
  Serious: Yes (Hospitalization)
  Sender: FDA-Public Use
  Company Number: US-PFIZER INC-2011114267

PATIENT
  Sex: Male
  Weight: 80.04 kg

DRUGS (11)
  1. IRINOTECAN HCL [Suspect]
     Indication: COLORECTAL CANCER METASTATIC
     Dosage: 180 MG/M2, EVERY 14 DAYS
     Route: 042
     Dates: start: 20110412, end: 20110425
  2. HYDROMORPHONE [Concomitant]
     Dosage: UNK
     Dates: start: 20110502
  3. DIPHENOXYLATE HCL AND ATROPINE SULFATE [Concomitant]
     Dosage: UNK
  4. LEUCOVORIN CALCIUM [Suspect]
     Indication: COLORECTAL CANCER METASTATIC
     Dosage: 400 MG/M2, EVERY 14 DAYS
     Route: 042
     Dates: start: 20110412, end: 20110425
  5. METRONIDAZOLE [Concomitant]
     Dosage: UNK
     Dates: start: 20110505, end: 20110510
  6. SUCRALFATE [Concomitant]
     Dosage: UNK
     Dates: start: 20110505
  7. FLUOROURACIL [Suspect]
     Indication: COLORECTAL CANCER METASTATIC
     Dosage: 400 MG/M2, EVERY 14 DAYS
     Route: 042
     Dates: start: 20110412, end: 20110425
  8. METHYLPHENIDATE [Concomitant]
     Dosage: UNK
     Dates: start: 20101129
  9. HYDROCHLOROTHIAZIDE [Concomitant]
     Dosage: UNK
     Dates: start: 20110117
  10. BLINDED THERAPY [Suspect]
     Indication: COLORECTAL CANCER METASTATIC
     Dosage: EVERY 14 DAYS
     Dates: start: 20110412, end: 20110425
  11. OXYCODONE [Concomitant]
     Dosage: UNK
     Dates: start: 20100628

REACTIONS (2)
  - RECTAL ULCER [None]
  - CLOSTRIDIUM DIFFICILE COLITIS [None]
